FAERS Safety Report 24757850 (Version 1)
Quarter: 2024Q4

REPORT INFORMATION
  Report Type: Spontaneous
  Country: GB (occurrence: GB)
  Receive Date: 20241220
  Receipt Date: 20241220
  Transmission Date: 20250115
  Serious: Yes (Life-Threatening, Hospitalization, Disabling, Other)
  Sender: ABBVIE
  Company Number: None

PATIENT
  Sex: Female

DRUGS (1)
  1. ATOGEPANT [Suspect]
     Active Substance: ATOGEPANT
     Indication: Migraine
     Dosage: STOP DATE: 2024
     Route: 065
     Dates: start: 20241107

REACTIONS (2)
  - Hypertensive crisis [Recovering/Resolving]
  - Retinal injury [Unknown]

NARRATIVE: CASE EVENT DATE: 20240101
